FAERS Safety Report 10276827 (Version 1)
Quarter: 2014Q3

REPORT INFORMATION
  Report Type: Spontaneous
  Country: US (occurrence: None)
  Receive Date: 20140701
  Receipt Date: 20140701
  Transmission Date: 20150326
  Serious: Yes (Other)
  Sender: FDA-Public Use
  Company Number: 2014JUB00033

PATIENT

DRUGS (2)
  1. METHYLPREDNISOLONE (METHYLPREDNISOLONE) UNKNOWN [Suspect]
     Active Substance: METHYLPREDNISOLONE
     Indication: BILIARY TRACT DISORDER
     Route: 042
  2. PREDNISOLONE (PREDNISOLONE) UNKNOWN [Suspect]
     Active Substance: PREDNISOLONE
     Indication: BILIARY TRACT DISORDER
     Route: 048

REACTIONS (1)
  - Anastomotic leak [None]
